FAERS Safety Report 24219076 (Version 1)
Quarter: 2024Q3

REPORT INFORMATION
  Report Type: Spontaneous
  Country: US (occurrence: US)
  Receive Date: 20240816
  Receipt Date: 20240816
  Transmission Date: 20241017
  Serious: Yes (Hospitalization, Other)
  Sender: ABBVIE
  Company Number: US-ABBVIE-5880678

PATIENT
  Age: 35 Year
  Sex: Female

DRUGS (3)
  1. LEUPROLIDE [Suspect]
     Active Substance: LEUPROLIDE
     Indication: In vitro fertilisation
     Dosage: 1 MG/0.2 ML
     Route: 065
  2. CETROTIDE [Suspect]
     Active Substance: CETRORELIX ACETATE
     Indication: In vitro fertilisation
     Dosage: 0.25 MG
     Route: 065
  3. FOLLITROPIN ALFA [Suspect]
     Active Substance: FOLLITROPIN ALFA
     Indication: In vitro fertilisation
     Dosage: 900 UNITS
     Route: 065

REACTIONS (1)
  - Renal cell carcinoma [Unknown]
